FAERS Safety Report 6985177-6 (Version None)
Quarter: 2010Q3

REPORT INFORMATION
  Report Type: 
  Country: None (occurrence: None)
  Receive Date: 20100915
  Receipt Date: 20100906
  Transmission Date: 20110219
  Serious: Yes (Hospitalization, Other)
  Sender: FDA-Public Use
  Company Number: US-ROCHE-726006

PATIENT

DRUGS (4)
  1. MYCOPHENOLATE MOFETIL [Suspect]
     Route: 065
  2. CAMPATH [Suspect]
     Dosage: DRUG: CAMPATH-1H; RECEIVED TWO DOSES
     Route: 065
  3. TACROLIMUS [Suspect]
     Route: 065
  4. SIROLIMUS [Suspect]
     Route: 065

REACTIONS (4)
  - BACTERIAL INFECTION [None]
  - FOCAL SEGMENTAL GLOMERULOSCLEROSIS [None]
  - TRANSPLANT REJECTION [None]
  - VIRAL INFECTION [None]
